FAERS Safety Report 10503612 (Version 1)
Quarter: 2014Q4

REPORT INFORMATION
  Report Type: Spontaneous
  Country: US (occurrence: None)
  Receive Date: 20141007
  Receipt Date: 20141007
  Transmission Date: 20150528
  Serious: Yes (Life-Threatening, Disabling, Other)
  Sender: FDA-Public Use
  Company Number: None

PATIENT
  Age: 70 Year
  Sex: Female
  Weight: 105.24 kg

DRUGS (2)
  1. JANUVIA [Suspect]
     Active Substance: SITAGLIPTIN PHOSPHATE
     Indication: BLOOD GLUCOSE DECREASED
     Dosage: 100 MG TABLET 1 PILL A DAY 1 PILL MORN BY MOUTH . 1 DAY BY MOUTH
     Route: 048
  2. ST. JOSEPH ASPIRIN ADULT LOW DOSE [Suspect]
     Active Substance: ASPIRIN

REACTIONS (9)
  - Neck pain [None]
  - Muscular weakness [None]
  - Pain [None]
  - Back pain [None]
  - Malaise [None]
  - Pain in extremity [None]
  - Deafness [None]
  - Dizziness [None]
  - Headache [None]

NARRATIVE: CASE EVENT DATE: 20140515
